FAERS Safety Report 7503312-8 (Version None)
Quarter: 2011Q2

REPORT INFORMATION
  Report Type: 
  Country: None (occurrence: None)
  Receive Date: 20110524
  Receipt Date: 20110524
  Transmission Date: 20111010
  Serious: Yes (Death)
  Sender: FDA-Public Use
  Company Number: None

PATIENT
  Age: 75 Year
  Sex: Female

DRUGS (8)
  1. REVLIMID [Suspect]
     Indication: MULTIPLE MYELOMA
     Dosage: 5MG DAILY ORALLY
     Route: 048
     Dates: start: 20080101, end: 20101101
  2. PERCOCET [Concomitant]
  3. GABAPENTIN [Concomitant]
  4. MEGACE [Concomitant]
  5. OMEPRAZOLE [Concomitant]
  6. TRAZODONE HCL [Concomitant]
  7. LEVOTHROID [Concomitant]
  8. XALATAN [Concomitant]

REACTIONS (3)
  - TRANSFUSION [None]
  - ECONOMIC PROBLEM [None]
  - TREATMENT NONCOMPLIANCE [None]
